FAERS Safety Report 10077251 (Version 1)
Quarter: 2014Q2

REPORT INFORMATION
  Report Type: Spontaneous
  Country: GB (occurrence: None)
  Receive Date: 20140410
  Receipt Date: 20140410
  Transmission Date: 20141212
  Serious: Yes (Death, Other)
  Sender: FDA-Public Use
  Company Number: 2280754

PATIENT
  Age: 65 Year
  Sex: Female

DRUGS (13)
  1. METHOTREXATE [Suspect]
     Indication: PRODUCT USED FOR UNKNOWN INDICATION
  2. ABATACEPT [Suspect]
     Indication: RHEUMATOID ARTHRITIS
     Route: 042
     Dates: start: 201307
  3. FOLIC ACID [Suspect]
     Indication: PRODUCT USED FOR UNKNOWN INDICATION
  4. HYDROXYCHLOROQUINE [Suspect]
     Indication: PRODUCT USED FOR UNKNOWN INDICATION
  5. PREDNISOLONE [Suspect]
     Indication: PRODUCT USED FOR UNKNOWN INDICATION
  6. SIMVASTATIN [Suspect]
     Indication: PRODUCT USED FOR UNKNOWN INDICATION
  7. WARFARIN [Suspect]
     Indication: DEEP VEIN THROMBOSIS
  8. ANTIHYPERTENSIVES [Suspect]
     Indication: BLOOD PRESSURE
  9. ALENDRONATE [Concomitant]
  10. CHOLECALCIFEROL [Concomitant]
  11. IMMUNOGLOBULIN [Concomitant]
  12. IODINE [Concomitant]
  13. QUININE SULFATE [Concomitant]

REACTIONS (5)
  - Deep vein thrombosis [None]
  - Wound [None]
  - General physical health deterioration [None]
  - Fall [None]
  - Injury [None]
